FAERS Safety Report 24412574 (Version 1)
Quarter: 2024Q4

REPORT INFORMATION
  Report Type: Spontaneous
  Country: US (occurrence: None)
  Receive Date: 20241007
  Receipt Date: 20241007
  Transmission Date: 20250115
  Serious: Yes (Other)
  Sender: Public
  Company Number: None

PATIENT
  Age: 48 Year
  Sex: Female
  Weight: 69.75 kg

DRUGS (7)
  1. OZEMPIC [Suspect]
     Active Substance: SEMAGLUTIDE
     Indication: Type 2 diabetes mellitus
  2. OZEMPIC [Suspect]
     Active Substance: SEMAGLUTIDE
     Indication: Weight control
  3. SERTRALINE [Suspect]
     Active Substance: SERTRALINE HYDROCHLORIDE
  4. METFORMIN [Concomitant]
     Active Substance: METFORMIN HYDROCHLORIDE
  5. AMLODEPINE-BENAZOPRIL [Concomitant]
  6. VITAMIN D [Concomitant]
     Active Substance: VITAMIN D NOS
  7. PROBIOTICS NOS [Concomitant]
     Active Substance: PROBIOTICS NOS

REACTIONS (8)
  - Anxiety [None]
  - Tachyphrenia [None]
  - Obsessive thoughts [None]
  - Sleep disorder [None]
  - Paranoia [None]
  - Depression [None]
  - Autophobia [None]
  - Suicidal ideation [None]

NARRATIVE: CASE EVENT DATE: 20240729
